FAERS Safety Report 17082369 (Version 2)
Quarter: 2019Q4

REPORT INFORMATION
  Report Type: Spontaneous
  Country: DE (occurrence: DE)
  Receive Date: 20191127
  Receipt Date: 20191202
  Transmission Date: 20200122
  Serious: Yes (Other)
  Sender: FDA-Public Use
  Company Number: DE-SA-2019SA325005

PATIENT
  Age: 26 Year
  Sex: Male
  Weight: 120 kg

DRUGS (2)
  1. ELOCTA [Suspect]
     Active Substance: EFMOROCTOCOG ALFA
     Indication: PROPHYLAXIS
     Dosage: 500 IU, QD
     Route: 065
     Dates: start: 201905, end: 201910
  2. ELOCTA [Suspect]
     Active Substance: EFMOROCTOCOG ALFA
     Dosage: UNK
     Route: 065

REACTIONS (2)
  - Haemarthrosis [Recovering/Resolving]
  - Off label use [Unknown]
